FAERS Safety Report 7765377-8 (Version None)
Quarter: 2011Q3

REPORT INFORMATION
  Report Type: 
  Country: None (occurrence: None)
  Receive Date: 20110921
  Receipt Date: 20110912
  Transmission Date: 20111222
  Serious: Yes (Other)
  Sender: FDA-Public Use
  Company Number: US-BAYER-2011-045390

PATIENT
  Age: 38 Year
  Sex: Female
  Weight: 72.562 kg

DRUGS (15)
  1. DROSPIRENONE AND ETHINYL ESTRADIOL [Suspect]
     Indication: MENSTRUAL CYCLE MANAGEMENT
     Dosage: UNK
     Dates: start: 20081208, end: 20110301
  2. OMEPRAZOLE [Concomitant]
     Dosage: UNK
     Dates: start: 20060801
  3. NOVOLOG [Concomitant]
     Indication: DIABETES MELLITUS
     Dosage: UNK
     Dates: start: 20030301
  4. LEVAQUIN [Concomitant]
     Dosage: UNK
     Dates: start: 20010401
  5. LEVAQUIN [Concomitant]
     Dosage: UNK
     Dates: start: 20070301
  6. YASMIN [Suspect]
     Indication: MENSTRUAL CYCLE MANAGEMENT
     Dosage: UNK
     Dates: start: 20020729, end: 20081208
  7. LISINOPRIL [Concomitant]
     Indication: HYPERTENSION
     Dosage: UNK
     Dates: start: 20050201
  8. ZYRTEC [Concomitant]
     Indication: MULTIPLE ALLERGIES
     Dosage: UNK
     Dates: start: 20070301
  9. AZITHROMYCIN [Concomitant]
     Dosage: UNK
     Dates: start: 20090301
  10. CEFAZOLIN [Concomitant]
     Dosage: UNK
     Dates: start: 20090501
  11. LEVOTHYROXINE SODIUM [Concomitant]
     Indication: HYPOTHYROIDISM
     Dosage: UNK
     Dates: start: 20021101
  12. LEVAQUIN [Concomitant]
     Dosage: UNK
     Dates: start: 20090401
  13. SIMVASTATIN [Concomitant]
     Indication: BLOOD CHOLESTEROL INCREASED
     Dosage: UNK
     Dates: start: 20070901
  14. YASMIN [Suspect]
     Indication: CONTRACEPTION
  15. OMEPRAZOLE [Concomitant]
     Indication: GASTROOESOPHAGEAL REFLUX DISEASE
     Dosage: UNK
     Dates: start: 20030101, end: 20030801

REACTIONS (4)
  - CHOLELITHIASIS [None]
  - INJURY [None]
  - CHOLECYSTITIS CHRONIC [None]
  - GALLBLADDER DISORDER [None]
